FAERS Safety Report 8772392 (Version 3)
Quarter: 2014Q2

REPORT INFORMATION
  Report Type: Spontaneous
  Country: US (occurrence: US)
  Receive Date: 20120905
  Receipt Date: 20131024
  Transmission Date: 20141212
  Serious: Yes (Other)
  Sender: FDA-Public Use
  Company Number: US-PFIZER INC-2012214729

PATIENT
  Age: 74 Year
  Sex: 0

DRUGS (2)
  1. VANCOMYCIN HCL [Suspect]
     Dosage: UNK
  2. ROCEPHIN [Suspect]
     Dosage: UNK

REACTIONS (2)
  - Shock [Unknown]
  - Drug hypersensitivity [Unknown]
